FAERS Safety Report 8308804-X (Version None)
Quarter: 2012Q2

REPORT INFORMATION
  Report Type: 
  Country: None (occurrence: None)
  Receive Date: 20120424
  Receipt Date: 20110331
  Transmission Date: 20120825
  Serious: Yes (Other)
  Sender: FDA-Public Use
  Company Number: US-TEVA-2011000520

PATIENT
  Sex: Female
  Weight: 67.192 kg

DRUGS (6)
  1. MORPHINE SULFATE [Concomitant]
     Dates: start: 20070101
  2. ZOLOFT [Concomitant]
  3. VALIUM [Concomitant]
     Dates: start: 20070101
  4. PROVIGIL [Suspect]
     Indication: SLEEP APNOEA SYNDROME
     Route: 048
     Dates: start: 20110127
  5. FENTANYL [Concomitant]
     Route: 062
     Dates: start: 20070101
  6. PROVIGIL [Suspect]
     Indication: FIBROMYALGIA

REACTIONS (3)
  - SOMNOLENCE [None]
  - PALPITATIONS [None]
  - HEADACHE [None]
